FAERS Safety Report 10739949 (Version 5)
Quarter: 2016Q1

REPORT INFORMATION
  Report Type: Report from Study
  Country: BR (occurrence: BR)
  Receive Date: 20150127
  Receipt Date: 20160210
  Transmission Date: 20160525
  Serious: Yes (Other)
  Sender: FDA-Public Use
  Company Number: BR-ROCHE-716698

PATIENT
  Age: 43 Year
  Sex: Female
  Weight: 68 kg

DRUGS (10)
  1. OMEPRAZOLE. [Concomitant]
     Active Substance: OMEPRAZOLE
     Dosage: PRE MEDICATIONS; FORM: INFUSION
     Route: 065
     Dates: start: 200910, end: 200910
  2. METHOTREXATE [Suspect]
     Active Substance: METHOTREXATE
     Indication: PRODUCT USED FOR UNKNOWN INDICATION
     Dosage: FORM: INJECTABLE
     Route: 065
  3. PREDNISONE. [Concomitant]
     Active Substance: PREDNISONE
     Dosage: PRE MEDICATIONS
     Route: 065
     Dates: start: 200910, end: 200910
  4. FOLIC ACID. [Concomitant]
     Active Substance: FOLIC ACID
     Route: 065
  5. ADVIL [Concomitant]
     Active Substance: IBUPROFEN
     Indication: ANALGESIC THERAPY
     Dosage: FREQUENCY: AS NEEDED (MORE OFTEN NOWDAYS)
     Route: 065
  6. FORMALDEHYDE. [Suspect]
     Active Substance: FORMALDEHYDE
     Indication: PRODUCT USED FOR UNKNOWN INDICATION
     Dosage: DRUG: FORMOL. INDICATION: OCCUPATIONAL EXPOSURE
     Route: 065
  7. PREDNISONE. [Concomitant]
     Active Substance: PREDNISONE
     Route: 065
  8. MABTHERA [Suspect]
     Active Substance: RITUXIMAB
     Indication: RHEUMATOID ARTHRITIS
     Dosage: FORM: INFUSION. DOSE: 500 MG/ML
     Route: 042
     Dates: start: 20091001, end: 20091016
  9. OMEPRAZOLE. [Concomitant]
     Active Substance: OMEPRAZOLE
     Route: 065
  10. ACTEMRA [Suspect]
     Active Substance: TOCILIZUMAB
     Indication: RHEUMATOID ARTHRITIS
     Route: 042
     Dates: start: 20130626, end: 20141215

REACTIONS (49)
  - Fall [Unknown]
  - Immunodeficiency [Unknown]
  - Joint range of motion decreased [Not Recovered/Not Resolved]
  - Back pain [Unknown]
  - Nausea [Unknown]
  - Joint dislocation [Not Recovered/Not Resolved]
  - Nausea [Recovered/Resolved]
  - Feeling cold [Recovered/Resolved]
  - Swelling [Unknown]
  - Hypersensitivity [Not Recovered/Not Resolved]
  - Herpes virus infection [Not Recovered/Not Resolved]
  - Rheumatoid arthritis [Not Recovered/Not Resolved]
  - Tooth infection [Recovered/Resolved]
  - Arthralgia [Not Recovered/Not Resolved]
  - Laceration [Unknown]
  - Oropharyngeal pain [Unknown]
  - Malaise [Unknown]
  - Therapy cessation [Unknown]
  - Pneumonia [Recovered/Resolved]
  - Bone disorder [Not Recovered/Not Resolved]
  - Foot deformity [Not Recovered/Not Resolved]
  - Dyspnoea [Unknown]
  - Diplegia [Not Recovered/Not Resolved]
  - Lung disorder [Unknown]
  - Drug ineffective [Unknown]
  - Muscular weakness [Unknown]
  - Malaise [Unknown]
  - Hypertension [Not Recovered/Not Resolved]
  - Pain [Unknown]
  - Herpes zoster [Unknown]
  - Weight decreased [Unknown]
  - Hypoaesthesia [Unknown]
  - Weight increased [Unknown]
  - Joint dislocation [Not Recovered/Not Resolved]
  - Rheumatoid arthritis [Recovering/Resolving]
  - Chronic sinusitis [Recovered/Resolved]
  - Insomnia [Unknown]
  - Depression [Unknown]
  - Arthropathy [Not Recovered/Not Resolved]
  - Hypoaesthesia [Unknown]
  - Haemorrhage [Unknown]
  - Sinusitis [Unknown]
  - Feeling of despair [Unknown]
  - Alopecia [Unknown]
  - Peripheral swelling [Not Recovered/Not Resolved]
  - Joint swelling [Not Recovered/Not Resolved]
  - Gait disturbance [Not Recovered/Not Resolved]
  - Immunodeficiency [Not Recovered/Not Resolved]
  - Blood glucose increased [Not Recovered/Not Resolved]

NARRATIVE: CASE EVENT DATE: 200911
